FAERS Safety Report 10559426 (Version 1)
Quarter: 2014Q4

REPORT INFORMATION
  Report Type: Spontaneous
  Country: KR (occurrence: KR)
  Receive Date: 20141103
  Receipt Date: 20141103
  Transmission Date: 20150529
  Serious: Yes (Hospitalization)
  Sender: FDA-Public Use
  Company Number: KR-MYLANLABS-2014M1009259

PATIENT

DRUGS (8)
  1. AMITRIPTYLINE [Concomitant]
     Active Substance: AMITRIPTYLINE
     Dosage: 35MG/DAY
     Route: 065
  2. PHENYTOIN. [Suspect]
     Active Substance: PHENYTOIN
     Indication: SEIZURE
     Dosage: 300MG/DAY
     Route: 065
  3. PERPHENAZINE. [Concomitant]
     Active Substance: PERPHENAZINE
     Indication: PERSONALITY CHANGE
     Dosage: 4MG/DAY
     Route: 065
  4. PERPHENAZINE. [Concomitant]
     Active Substance: PERPHENAZINE
     Indication: AGGRESSION
     Dosage: 4MG/DAY
     Route: 065
  5. CLONAZEPAM. [Concomitant]
     Active Substance: CLONAZEPAM
     Dosage: 1MG/DAY
     Route: 065
  6. SULPIRIDE [Concomitant]
     Active Substance: SULPIRIDE
     Indication: PERSONALITY CHANGE
     Dosage: 400MG/DAY
     Route: 065
  7. LORAZEPAM. [Concomitant]
     Active Substance: LORAZEPAM
     Dosage: 1MG/DAY
     Route: 065
  8. SULPIRIDE [Concomitant]
     Active Substance: SULPIRIDE
     Indication: AGGRESSION
     Dosage: 400MG/DAY
     Route: 065

REACTIONS (2)
  - Neuroleptic malignant syndrome [None]
  - Parkinsonism [None]
